FAERS Safety Report 6244868-5 (Version None)
Quarter: 2009Q2

REPORT INFORMATION
  Report Type: 
  Country: None (occurrence: None)
  Receive Date: 20090625
  Receipt Date: 20090619
  Transmission Date: 20091009
  Serious: Yes (Other)
  Sender: FDA-Public Use
  Company Number: A0793418A

PATIENT
  Sex: Male
  Weight: 23 kg

DRUGS (4)
  1. ZINNAT [Suspect]
     Dosage: 250MG TWICE PER DAY
     Route: 048
     Dates: start: 20090616
  2. PREDSIM [Concomitant]
     Dosage: 5ML PER DAY
     Dates: start: 20090617
  3. BROMOPRIDE [Concomitant]
     Dosage: 22DROP THREE TIMES PER DAY
     Dates: start: 20090101
  4. RANITIDINE [Concomitant]
     Dosage: 2UNIT TWICE PER DAY
     Dates: start: 20090101

REACTIONS (4)
  - ANAL HAEMORRHAGE [None]
  - NAUSEA [None]
  - PAIN IN EXTREMITY [None]
  - TOOTHACHE [None]
